FAERS Safety Report 10166558 (Version 1)
Quarter: 2014Q2

REPORT INFORMATION
  Report Type: Spontaneous
  Country: US (occurrence: US)
  Receive Date: 20140512
  Receipt Date: 20140512
  Transmission Date: 20141212
  Serious: No
  Sender: FDA-Public Use
  Company Number: US-JNJFOC-20140416932

PATIENT
  Age: 29 Year
  Sex: Male
  Weight: 117.94 kg

DRUGS (4)
  1. INVEGA SUSTENNA [Suspect]
     Indication: SCHIZOPHRENIA
     Route: 030
  2. TRAZODONE [Concomitant]
     Route: 048
  3. OXAZEPAM [Concomitant]
     Route: 048
  4. HYDROXYZINE [Concomitant]
     Indication: ANXIETY

REACTIONS (1)
  - Drug dose omission [Unknown]
